FAERS Safety Report 9549736 (Version 1)
Quarter: 2013Q3

REPORT INFORMATION
  Report Type: Spontaneous
  Country: US (occurrence: US)
  Receive Date: 20130924
  Receipt Date: 20130924
  Transmission Date: 20140515
  Serious: No
  Sender: FDA-Public Use
  Company Number: US-ALLERGAN-1311466US

PATIENT
  Age: 76 Year
  Sex: Female

DRUGS (4)
  1. LUMIGAN 0.01% [Suspect]
     Indication: GLAUCOMA
     Dosage: 1 GTT, QHS
     Route: 047
  2. RESTASIS [Concomitant]
     Indication: DRY EYE
     Dosage: 2 GTT, BID
     Route: 047
  3. GENTEAL                            /00445101/ [Concomitant]
     Indication: DRY EYE
     Dosage: UNK UNK, PRN
  4. SYNTHROID [Concomitant]
     Indication: THYROID DISORDER

REACTIONS (1)
  - Neuropathy peripheral [Unknown]
